FAERS Safety Report 17975905 (Version 4)
Quarter: 2020Q3

REPORT INFORMATION
  Report Type: Spontaneous
  Country: JP (occurrence: JP)
  Receive Date: 20200702
  Receipt Date: 20200812
  Transmission Date: 20201103
  Serious: Yes (Other)
  Sender: FDA-Public Use
  Company Number: JP-JNJFOC-20200621894

PATIENT
  Age: 72 Year
  Sex: Female

DRUGS (7)
  1. DUROTEP [Suspect]
     Active Substance: FENTANYL
     Indication: PAIN
     Dosage: FENTANYL (MATRIX PATCH) 25MCG/HR
     Route: 062
  2. CYMBALTA [Concomitant]
     Active Substance: DULOXETINE HYDROCHLORIDE
     Indication: PAIN
     Dosage: UNKNOWN
     Route: 048
  3. DUROTEP [Suspect]
     Active Substance: FENTANYL
     Dosage: FENTANYL (MATRIX PATCH) 12.5MCG/HR
     Route: 062
  4. PREDONINE [Concomitant]
     Active Substance: PREDNISOLONE
     Indication: FRACTURE
     Route: 048
  5. MOHRUS [Concomitant]
     Active Substance: KETOPROFEN
     Indication: PAIN
     Dosage: DOSE UNKNOWN
     Route: 062
  6. SHAKUYAKUKANZOTO [Concomitant]
     Active Substance: HERBALS
     Indication: PAIN
     Dosage: DOSE UNKNOWN
     Route: 048
  7. DUROTEP [Suspect]
     Active Substance: FENTANYL
     Dosage: FENTANYL (MATRIX PATCH) 25MCG/HR
     Route: 062

REACTIONS (2)
  - Osteoporosis [Not Recovered/Not Resolved]
  - Fracture [Not Recovered/Not Resolved]
